FAERS Safety Report 8785644 (Version 1)
Quarter: 2012Q4

REPORT INFORMATION
  Report Type: 
  Country: NO (occurrence: NO)
  Receive Date: 20120914
  Receipt Date: 20120914
  Transmission Date: 20130627
  Serious: Yes (Other)
  Sender: FDA-Public Use
  Company Number: NO-MUTUAL PHARMACEUTICAL COMPANY, INC.-ALLP20120006

PATIENT
  Age: 82 Year
  Sex: Female

DRUGS (9)
  1. ALLOPUR (ALLOPURINOL) [Suspect]
     Indication: HYPERURICAEMIA
     Route: 048
     Dates: start: 201204, end: 20120505
  2. PREDNISOLONE [Concomitant]
     Indication: RHEUMATOID ARTHRITIS
     Route: 048
  3. ADALAT OROS (NIFEDIPINE) [Concomitant]
     Indication: HYPERTENSION
     Route: 048
  4. NOBLIGAN (TRAMADOL) [Concomitant]
     Indication: DRUG USE FOR UNKNOWN INDICATION
     Route: 048
     Dates: end: 20120506
  5. SIMVASTATIN [Concomitant]
     Indication: DRUG USE FOR UNKNOWN INDICATION
     Route: 048
     Dates: end: 20120506
  6. CARVEDILOL [Concomitant]
     Indication: HYPERTENSION
     Route: 048
     Dates: end: 20120506
  7. DUROFERON (FERROUS SULFATE) [Concomitant]
     Indication: ANEMIA MICROCYTIC
     Route: 048
     Dates: end: 20120506
  8. COAPROVEL (IRBESARTAN, HYDROCHLOROTHIAZIDE) [Concomitant]
     Indication: HYPERTENSION
     Route: 048
     Dates: end: 20120506
  9. LISINOPRIL [Concomitant]
     Indication: HYPERTENSION
     Route: 048
     Dates: end: 20120506

REACTIONS (5)
  - Toxic epidermal necrolysis [None]
  - Stevens-Johnson syndrome [None]
  - Bacterial test positive [None]
  - Pseudomonas test positive [None]
  - General physical health deterioration [None]
